FAERS Safety Report 24152956 (Version 1)
Quarter: 2024Q3

REPORT INFORMATION
  Report Type: Spontaneous
  Country: CH (occurrence: CH)
  Receive Date: 20240730
  Receipt Date: 20240730
  Transmission Date: 20241016
  Serious: Yes (Hospitalization, Other)
  Sender: ELI LILLY AND CO
  Company Number: None

PATIENT
  Age: 54 Year
  Sex: Female

DRUGS (11)
  1. PEMETREXED [Suspect]
     Active Substance: PEMETREXED
     Indication: Biphasic mesothelioma
     Dosage: UNK, CYCLICAL
     Route: 065
     Dates: start: 20230526, end: 20240405
  2. CYMBALTA [Suspect]
     Active Substance: DULOXETINE HYDROCHLORIDE
     Indication: Product used for unknown indication
     Dosage: 30 MG, UNK
     Route: 065
  3. BEVACIZUMAB [Suspect]
     Active Substance: BEVACIZUMAB
     Indication: Biphasic mesothelioma
     Dosage: UNK, CYCLICAL
     Route: 065
     Dates: start: 20230526, end: 20240405
  4. CARBOPLATIN [Concomitant]
     Active Substance: CARBOPLATIN
     Indication: Mesothelioma malignant
  5. MOVICOL [Concomitant]
     Active Substance: POLYETHYLENE GLYCOL 3350\POTASSIUM CHLORIDE\SODIUM BICARBONATE\SODIUM CHLORIDE
     Indication: Product used for unknown indication
     Dosage: UNK UNK, UNKNOWN
     Route: 065
  6. NEXIUM [Concomitant]
     Active Substance: ESOMEPRAZOLE MAGNESIUM
     Dosage: 40 MG, UNK
     Route: 065
  7. FOLIC ACID [Concomitant]
     Active Substance: FOLIC ACID
     Dosage: .4 MG, UNK
     Route: 065
     Dates: start: 20230515
  8. METOCLOPRAMIDE HYDROCHLORIDE [Concomitant]
     Active Substance: METOCLOPRAMIDE HYDROCHLORIDE
     Indication: Nausea
     Dosage: 10 MG, TID
     Route: 065
  9. BUPIVACAINE [Concomitant]
     Active Substance: BUPIVACAINE
     Indication: Chest pain
     Dosage: 53.98 MG, UNK
     Route: 037
     Dates: start: 20230419
  10. MORPHINE [Concomitant]
     Active Substance: MORPHINE
     Indication: Chest pain
     Dosage: 12.15 MG, UNK
     Route: 037
     Dates: start: 20230419
  11. DEXAMETHASONE SODIUM PHOSPHATE [Concomitant]
     Active Substance: DEXAMETHASONE PHOSPHATE\DEXAMETHASONE SODIUM PHOSPHATE
     Indication: Nausea
     Dosage: 4 MG, BID
     Route: 065
     Dates: start: 20230526

REACTIONS (1)
  - Erythema [Recovering/Resolving]

NARRATIVE: CASE EVENT DATE: 20240101
